FAERS Safety Report 23284246 (Version 1)
Quarter: 2023Q4

REPORT INFORMATION
  Report Type: Spontaneous
  Country: TZ (occurrence: TZ)
  Receive Date: 20231211
  Receipt Date: 20231211
  Transmission Date: 20240109
  Serious: Yes (Congenital Anomaly)
  Sender: FDA-Public Use
  Company Number: TZ-GILEAD-2023-0635445

PATIENT
  Sex: Female

DRUGS (4)
  1. VIREAD [Suspect]
     Active Substance: TENOFOVIR DISOPROXIL FUMARATE
     Indication: HIV infection
     Route: 065
  2. CEFTRIAXONE [Concomitant]
     Active Substance: CEFTRIAXONE\CEFTRIAXONE SODIUM
     Dosage: 250 MG, QD
     Route: 042
  3. NEVIRAPINE [Concomitant]
     Active Substance: NEVIRAPINE
     Route: 048
  4. MEROPENEM [Concomitant]
     Active Substance: MEROPENEM
     Dosage: 75 MG, Q8H
     Route: 042

REACTIONS (4)
  - Atrial septal defect [Unknown]
  - Teratoma [Unknown]
  - Small for dates baby [Unknown]
  - Foetal exposure during pregnancy [Unknown]
